FAERS Safety Report 9571472 (Version 2)
Quarter: 2013Q4

REPORT INFORMATION
  Report Type: Report from Study
  Country: US (occurrence: US)
  Receive Date: 20131001
  Receipt Date: 20131004
  Transmission Date: 20140711
  Serious: Yes (Hospitalization)
  Sender: FDA-Public Use
  Company Number: US-JNJFOC-20130913854

PATIENT
  Age: 16 Year
  Sex: Male
  Weight: 57.7 kg

DRUGS (8)
  1. REMICADE [Suspect]
     Indication: CROHN^S DISEASE
     Route: 042
     Dates: start: 20100913, end: 20130109
  2. HUMIRA [Concomitant]
     Route: 065
     Dates: start: 20130318
  3. HUMIRA [Concomitant]
     Route: 065
     Dates: start: 20091106, end: 20130119
  4. HUMIRA [Concomitant]
     Route: 065
     Dates: start: 20130122
  5. METHOTREXATE [Concomitant]
     Route: 065
     Dates: end: 20130214
  6. ACETAMINOPHEN [Concomitant]
     Route: 065
  7. DIPHENHYDRAMINE [Concomitant]
     Route: 065
  8. ANTIBIOTICS [Concomitant]
     Indication: INFLAMMATORY BOWEL DISEASE
     Route: 065

REACTIONS (2)
  - Crohn^s disease [Recovered/Resolved with Sequelae]
  - Liver abscess [Recovered/Resolved]
